FAERS Safety Report 14484873 (Version 2)
Quarter: 2020Q2

REPORT INFORMATION
  Report Type: Spontaneous
  Country: AR (occurrence: AR)
  Receive Date: 20180205
  Receipt Date: 20200515
  Transmission Date: 20200713
  Serious: Yes (Other)
  Sender: FDA-Public Use
  Company Number: AR-BRISTOL-MYERS SQUIBB COMPANY-BMS-2018-008539

PATIENT
  Age: 41 Year
  Sex: Male

DRUGS (1)
  1. SPRYCEL [Suspect]
     Active Substance: DASATINIB
     Indication: CHRONIC MYELOID LEUKAEMIA
     Dosage: 100 UNK
     Route: 048
     Dates: start: 20170714, end: 20180111

REACTIONS (2)
  - Lymphadenopathy [Recovered/Resolved]
  - Hyperplasia [Unknown]

NARRATIVE: CASE EVENT DATE: 20170714
